FAERS Safety Report 7985730-7 (Version None)
Quarter: 2011Q4

REPORT INFORMATION
  Report Type: 
  Country: None (occurrence: None)
  Receive Date: 20111216
  Receipt Date: 20111216
  Transmission Date: 20120403
  Serious: No
  Sender: FDA-Public Use
  Company Number: None

PATIENT
  Age: 34 Year
  Sex: Male
  Weight: 70 kg

DRUGS (2)
  1. DIPHENHYDRAMINE HCL [Suspect]
     Indication: SLEEP DISORDER THERAPY
     Dosage: 12.5MG
     Route: 048
     Dates: start: 20070101, end: 20111112
  2. DIPHENHYDRAMINE TABLET [Concomitant]

REACTIONS (5)
  - MUSCULOSKELETAL PAIN [None]
  - MOBILITY DECREASED [None]
  - PAIN IN EXTREMITY [None]
  - PRODUCT FORMULATION ISSUE [None]
  - UNEVALUABLE EVENT [None]
